FAERS Safety Report 10366022 (Version 1)
Quarter: 2014Q3

REPORT INFORMATION
  Report Type: Spontaneous
  Country: PT (occurrence: PT)
  Receive Date: 20140806
  Receipt Date: 20140806
  Transmission Date: 20150326
  Serious: Yes (Other)
  Sender: FDA-Public Use
  Company Number: PT-BAYER-2014-113492

PATIENT
  Age: 30 Year
  Sex: Male

DRUGS (1)
  1. INTERFERON BETA - 1B [Suspect]
     Active Substance: INTERFERON BETA-1B
     Indication: RELAPSING-REMITTING MULTIPLE SCLEROSIS
     Dosage: UNK
     Route: 058
     Dates: start: 2001

REACTIONS (5)
  - Injection site pain [None]
  - Injection site abscess [None]
  - Multiple sclerosis relapse [None]
  - Injection site inflammation [None]
  - Injection site inflammation [None]

NARRATIVE: CASE EVENT DATE: 2006
